FAERS Safety Report 11624432 (Version 2)
Quarter: 2016Q4

REPORT INFORMATION
  Report Type: Spontaneous
  Country: CH (occurrence: CH)
  Receive Date: 20151013
  Receipt Date: 20161212
  Transmission Date: 20170206
  Serious: Yes (Other)
  Sender: FDA-Public Use
  Company Number: CH-ROCHE-1642193

PATIENT
  Age: 50 Year
  Sex: Female
  Weight: 85 kg

DRUGS (21)
  1. AVASTIN [Suspect]
     Active Substance: BEVACIZUMAB
     Indication: BREAST CANCER
     Route: 042
     Dates: start: 201201, end: 201211
  2. GEMCITABINE [Concomitant]
     Active Substance: GEMCITABINE\GEMCITABINE HYDROCHLORIDE
     Route: 065
     Dates: start: 201211, end: 201302
  3. AFINITOR [Suspect]
     Active Substance: EVEROLIMUS
     Indication: BREAST CANCER
     Route: 048
     Dates: start: 20140203, end: 20140507
  4. PACLITAXEL. [Concomitant]
     Active Substance: PACLITAXEL
     Indication: BREAST CANCER
     Route: 065
     Dates: start: 201201, end: 201211
  5. CYCLOPHOSPHAMIDE. [Concomitant]
     Active Substance: CYCLOPHOSPHAMIDE
     Route: 065
     Dates: start: 201302, end: 201306
  6. ANASTROZOL [Concomitant]
     Active Substance: ANASTROZOLE
     Route: 065
     Dates: start: 201306, end: 201401
  7. PACLITAXEL. [Concomitant]
     Active Substance: PACLITAXEL
     Route: 065
     Dates: start: 201201, end: 201205
  8. EPIRUBICIN [Concomitant]
     Active Substance: EPIRUBICIN
     Route: 065
     Dates: start: 201302, end: 201306
  9. VINORELBINE [Concomitant]
     Active Substance: VINORELBINE\VINORELBINE TARTRATE
     Dosage: DISEASE PROGRESSION
     Route: 065
     Dates: start: 201412, end: 201507
  10. TAMOXIFEN [Concomitant]
     Active Substance: TAMOXIFEN
     Dosage: ADJUVANT ENDOCRINE THERAPY
     Route: 065
     Dates: start: 200904, end: 201201
  11. CITALOPRAM [Concomitant]
     Active Substance: CITALOPRAM HYDROBROMIDE
     Route: 048
     Dates: start: 20120101
  12. METAMIZOL [Concomitant]
     Active Substance: METAMIZOLE SODIUM
     Dosage: 0.5 G/ML IN RESERVE MAX. 4X30
     Route: 065
  13. ERIBULIN [Concomitant]
     Active Substance: ERIBULIN
     Dosage: STABLE DISEASE AFTER 3 CYCLES, DISEASE PROGRESSION AFTER 6 CYCLES
     Route: 065
     Dates: start: 201405, end: 201409
  14. BONDRONAT [Concomitant]
     Active Substance: IBANDRONIC ACID
     Route: 065
     Dates: start: 201202
  15. PANTOPRAZOL [Concomitant]
     Active Substance: PANTOPRAZOLE SODIUM
     Route: 065
  16. COVERSUM [Concomitant]
     Active Substance: PERINDOPRIL
     Indication: HYPERTENSION
     Route: 048
     Dates: start: 20130101
  17. XELODA [Suspect]
     Active Substance: CAPECITABINE
     Indication: BREAST CANCER
     Route: 065
     Dates: start: 201412, end: 201508
  18. AROMASIN [Suspect]
     Active Substance: EXEMESTANE
     Indication: BREAST CANCER
     Route: 048
     Dates: start: 20140203, end: 20140507
  19. CISPLATIN. [Suspect]
     Active Substance: CISPLATIN
     Indication: INVASIVE BREAST CARCINOMA
     Route: 065
     Dates: start: 201509
  20. METFIN [Suspect]
     Active Substance: METFORMIN HYDROCHLORIDE
     Indication: DIABETES MELLITUS
     Route: 048
     Dates: start: 20121201
  21. PACLITAXEL. [Concomitant]
     Active Substance: PACLITAXEL
     Route: 065
     Dates: start: 201211, end: 201302

REACTIONS (7)
  - Decreased appetite [Recovered/Resolved]
  - Gastrooesophageal reflux disease [Not Recovered/Not Resolved]
  - Fatigue [Recovered/Resolved]
  - Toxicity to various agents [Unknown]
  - Diarrhoea [Recovered/Resolved]
  - Gamma-glutamyltransferase increased [Unknown]
  - Nephropathy toxic [Recovered/Resolved]

NARRATIVE: CASE EVENT DATE: 20140101
